FAERS Safety Report 7915754-7 (Version None)
Quarter: 2011Q4

REPORT INFORMATION
  Report Type: 
  Country: None (occurrence: None)
  Receive Date: 20111115
  Receipt Date: 20111110
  Transmission Date: 20120403
  Serious: Yes (Other)
  Sender: FDA-Public Use
  Company Number: IR-ROXANE LABORATORIES, INC.-2011-RO-01620RO

PATIENT
  Age: 3 Year
  Sex: Female

DRUGS (4)
  1. PREDNISONE [Suspect]
     Indication: RENAL TRANSPLANT
  2. AZATHIOPRINE [Suspect]
     Indication: RENAL TRANSPLANT
     Route: 048
  3. CYCLOSPORINE [Suspect]
     Indication: RENAL TRANSPLANT
  4. AZATHIOPRINE [Suspect]
     Route: 048

REACTIONS (2)
  - LEUKOPENIA [None]
  - TOXICITY TO VARIOUS AGENTS [None]
